FAERS Safety Report 5800308-9 (Version None)
Quarter: 2008Q3

REPORT INFORMATION
  Report Type: 
  Country: None (occurrence: None)
  Receive Date: 20080703
  Receipt Date: 20080624
  Transmission Date: 20090109
  Serious: Yes (Hospitalization, Other)
  Sender: FDA-Public Use
  Company Number: US-AMGEN-KDL289638

PATIENT
  Sex: Female
  Weight: 65.8 kg

DRUGS (13)
  1. PROCRIT [Suspect]
     Indication: ANAEMIA OF MALIGNANT DISEASE
     Dates: start: 19980601
  2. TOPOTECAN [Concomitant]
     Dates: start: 20080314
  3. ZOFRAN [Concomitant]
     Dates: start: 20080301
  4. GLEEVEC [Concomitant]
     Route: 048
     Dates: start: 20080414
  5. NEUPOGEN [Concomitant]
     Dates: start: 20080411
  6. LEVOTHYROXINE SODIUM [Concomitant]
     Dates: start: 20050101
  7. TAXOL [Concomitant]
     Dates: start: 19980101
  8. CARBOPLATIN [Concomitant]
     Dates: start: 19980101
  9. GEMZAR [Concomitant]
     Dates: start: 20040101, end: 20050101
  10. CISPLATIN [Concomitant]
     Dates: start: 20040101
  11. DOXIL [Concomitant]
     Dates: start: 20060106
  12. AVASTIN [Concomitant]
     Dates: start: 20070223, end: 20070907
  13. ETOPOSIDE [Concomitant]
     Dates: start: 20070223, end: 20070907

REACTIONS (11)
  - ASTHENIA [None]
  - BONE MARROW FAILURE [None]
  - DIARRHOEA [None]
  - EXPLORATORY OPERATION [None]
  - INFECTION [None]
  - INTESTINAL OBSTRUCTION [None]
  - MALIGNANT NEOPLASM PROGRESSION [None]
  - NAUSEA [None]
  - PALMAR-PLANTAR ERYTHRODYSAESTHESIA SYNDROME [None]
  - STOMATITIS [None]
  - THERAPEUTIC RESPONSE DELAYED [None]
